FAERS Safety Report 21647345 (Version 1)
Quarter: 2022Q4

REPORT INFORMATION
  Report Type: Spontaneous
  Country: FR (occurrence: FR)
  Receive Date: 20221127
  Receipt Date: 20221127
  Transmission Date: 20230112
  Serious: Yes (Hospitalization)
  Sender: FDA-Public Use
  Company Number: FR-PIRAMAL CRITICAL CARE LIMITED-2022-PEL-000687

PATIENT

DRUGS (1)
  1. BACLOFEN [Suspect]
     Active Substance: BACLOFEN
     Indication: Muscle rigidity
     Dosage: 50 MICROGRAM/24H
     Route: 037
     Dates: start: 20220214

REACTIONS (2)
  - Vertigo [Unknown]
  - Hypotonia [Recovering/Resolving]

NARRATIVE: CASE EVENT DATE: 20220225
